FAERS Safety Report 8866015 (Version 1)
Quarter: 2012Q4

REPORT INFORMATION
  Report Type: Report from Study
  Country: US (occurrence: US)
  Receive Date: 20121025
  Receipt Date: 20121025
  Transmission Date: 20130627
  Serious: No
  Sender: FDA-Public Use
  Company Number: US-ABBOTT-12P-163-0973257-00

PATIENT
  Sex: Female

DRUGS (1)
  1. LUPRON DEPOT 3.75 MG [Suspect]
     Indication: ENDOMETRIOSIS
     Dates: start: 201205, end: 201208

REACTIONS (2)
  - Mood swings [Unknown]
  - Hot flush [Unknown]
